FAERS Safety Report 24659720 (Version 6)
Quarter: 2025Q1

REPORT INFORMATION
  Report Type: Spontaneous
  Country: US (occurrence: US)
  Receive Date: 20241125
  Receipt Date: 20250107
  Transmission Date: 20250409
  Serious: No
  Sender: PFIZER
  Company Number: US-PFIZER INC-PV202400018564

PATIENT
  Age: 65 Year
  Sex: Female
  Weight: 86.5 kg

DRUGS (7)
  1. BRAFTOVI [Suspect]
     Active Substance: ENCORAFENIB
     Indication: Malignant melanoma
     Dosage: 450 MG, 1X/DAY (TAKE 6 CAPS ONCE A DAY)
     Route: 048
     Dates: start: 20231201
  2. BRAFTOVI [Suspect]
     Active Substance: ENCORAFENIB
     Indication: Metastases to central nervous system
     Dosage: 450 MG, 1X/DAY (TAKE 6 CAPS ONCE A DAY)
     Route: 048
     Dates: start: 20240912
  3. BRAFTOVI [Suspect]
     Active Substance: ENCORAFENIB
     Indication: Metastases to lymph nodes
     Dosage: 450 MG, 1X/DAY (TAKE 6 CAPS ONCE A DAY)
     Route: 048
     Dates: start: 20240916
  4. MEKTOVI [Suspect]
     Active Substance: BINIMETINIB
     Indication: Malignant melanoma
     Dosage: 45 MG, 2X/DAY (TAKE 3 TABS TWICE A DAY)
     Route: 048
     Dates: start: 20231201
  5. MEKTOVI [Suspect]
     Active Substance: BINIMETINIB
     Indication: Metastases to central nervous system
     Dosage: 45 MG, 2X/DAY (TAKE 3 TABS TWICE A DAY)
     Route: 048
     Dates: start: 20240912
  6. MEKTOVI [Suspect]
     Active Substance: BINIMETINIB
     Indication: Metastases to lymph nodes
     Dosage: 45 MG, 2X/DAY (TAKE 3 TABS TWICE A DAY)
     Route: 048
     Dates: start: 20240916
  7. XANAX [Concomitant]
     Active Substance: ALPRAZOLAM
     Dosage: 0.5 MG, 2X/DAY (2 TIMES DAILY AS NEEDED)
     Route: 048
     Dates: start: 20240903

REACTIONS (4)
  - Blood glucose increased [Unknown]
  - Blood creatinine increased [Unknown]
  - Blood lactate dehydrogenase increased [Unknown]
  - Neoplasm progression [Unknown]
